FAERS Safety Report 6076351-4 (Version None)
Quarter: 2009Q1

REPORT INFORMATION
  Report Type: 
  Country: None (occurrence: None)
  Receive Date: 20090209
  Receipt Date: 20090127
  Transmission Date: 20090719
  Serious: Yes (Other)
  Sender: FDA-Public Use
  Company Number: US-GDP-09405370

PATIENT
  Sex: Female

DRUGS (1)
  1. TRI-LUMA (FLUOCINOLONE ACETONIDE; HYDROQUINONE; TRETINOIN) [Suspect]
     Indication: DRUG USE FOR UNKNOWN INDICATION
     Dosage: 1 DF TOPICAL
     Route: 061
     Dates: start: 20090126, end: 20090126

REACTIONS (3)
  - DYSPNOEA [None]
  - HYPERSENSITIVITY [None]
  - PHARYNGEAL OEDEMA [None]
